FAERS Safety Report 9516654 (Version 1)
Quarter: 2013Q1

REPORT INFORMATION
  Report Type: Spontaneous
  Country: US (occurrence: None)
  Receive Date: 20130305
  Receipt Date: 20130305
  Transmission Date: 20140127
  Serious: Yes (Disabling)
  Sender: FDA-Public Use
  Company Number: 163-21880-12011751

PATIENT
  Sex: Male

DRUGS (2)
  1. REVLIMID(LENALIDOMIDE)(10 MILLIGRAM, CAPSULES) [Suspect]
     Indication: LYMPHOMA
     Route: 048
     Dates: start: 201108
  2. ALLOPURINOL(ALLOPURINOL)(UNKNOWN) [Concomitant]

REACTIONS (1)
  - Fatigue [None]
